FAERS Safety Report 5953840-1 (Version None)
Quarter: 2008Q4

REPORT INFORMATION
  Report Type: 
  Country: None (occurrence: None)
  Receive Date: 20081114
  Receipt Date: 20081103
  Transmission Date: 20090506
  Serious: Yes (Other)
  Sender: FDA-Public Use
  Company Number: CA-ELI_LILLY_AND_COMPANY-CA200807005185

PATIENT
  Sex: Male

DRUGS (4)
  1. CYMBALTA [Suspect]
     Indication: DEPRESSION
     Dosage: 60 MG, DAILY (1/D)
     Dates: start: 20080401
  2. CYMBALTA [Interacting]
     Dosage: 60 MG, QOD
     Dates: start: 20080101
  3. CYMBALTA [Interacting]
     Dosage: 30 MG, DAILY (1/D)
     Route: 048
  4. ALPRAZOLAM [Concomitant]
     Dosage: 0.5 MG, DAILY (1/D)
     Route: 048

REACTIONS (9)
  - DRUG INTERACTION [None]
  - DRUG WITHDRAWAL SYNDROME [None]
  - HANGOVER [None]
  - HEADACHE [None]
  - INSOMNIA [None]
  - MOTION SICKNESS [None]
  - NAUSEA [None]
  - SINUS ARRHYTHMIA [None]
  - THINKING ABNORMAL [None]
